FAERS Safety Report 8017368-X (Version None)
Quarter: 2012Q1

REPORT INFORMATION
  Report Type: 
  Country: None (occurrence: None)
  Receive Date: 20120102
  Receipt Date: 20111226
  Transmission Date: 20120608
  Serious: Yes (Hospitalization, Other)
  Sender: FDA-Public Use
  Company Number: JP-ROCHE-795347

PATIENT
  Age: 61 Year
  Sex: Female
  Weight: 64 kg

DRUGS (9)
  1. AVASTIN [Suspect]
     Dosage: NOTE: DOSAGE IS UNCERTAIN.
     Route: 041
     Dates: start: 20110610, end: 20110722
  2. OXALIPLATIN [Suspect]
     Indication: LARGE INTESTINE CARCINOMA
     Dosage: NOTE: DOSAGE IS UNCERTAIN.
     Route: 041
     Dates: start: 20100226, end: 20101119
  3. OXALIPLATIN [Suspect]
     Route: 041
  4. DECADRON [Concomitant]
     Route: 065
  5. KYTRIL [Concomitant]
     Route: 041
     Dates: start: 20100722, end: 20100722
  6. XELODA [Suspect]
     Indication: RECTAL CANCER RECURRENT
     Dosage: DRUG: XELODA 300, NOTE: DOSAGE IS UNCERTAIN.
     Route: 048
     Dates: start: 20100226, end: 20101119
  7. XELODA [Suspect]
     Dosage: DRUG: XELODA 300, NOTE: DOSAGE IS UNCERTAIN.
     Route: 048
     Dates: start: 20110610, end: 20110722
  8. AVASTIN [Suspect]
     Indication: RECTAL CANCER RECURRENT
     Dosage: DRUG: AVASTINA400MG/16ML, NOTE: DOSAGE IS UNCERTAIN.
     Route: 041
     Dates: start: 20100226, end: 20101119
  9. OXALIPLATIN [Suspect]
     Dosage: NOTE: DOSAGE IS UNCERTAIN.
     Route: 041
     Dates: start: 20110610, end: 20110101

REACTIONS (3)
  - HYPERTENSION [None]
  - INFUSION RELATED REACTION [None]
  - BACK PAIN [None]
